FAERS Safety Report 4630142-7 (Version None)
Quarter: 2005Q2

REPORT INFORMATION
  Report Type: 
  Country: None (occurrence: None)
  Receive Date: 20050408
  Receipt Date: 20050401
  Transmission Date: 20051028
  Serious: Yes (Other)
  Sender: FDA-Public Use
  Company Number: PHEH2005US03874

PATIENT
  Age: 75 Year
  Sex: Male

DRUGS (1)
  1. ELIDEL [Suspect]
     Indication: ECZEMA
     Dosage: UNK, QD
     Route: 061
     Dates: start: 20041101, end: 20041201

REACTIONS (1)
  - BLADDER CANCER RECURRENT [None]
